FAERS Safety Report 7293589-9 (Version None)
Quarter: 2011Q1

REPORT INFORMATION
  Report Type: 
  Country: None (occurrence: None)
  Receive Date: 20110215
  Receipt Date: 20110202
  Transmission Date: 20110831
  Serious: Yes (Life-Threatening, Hospitalization)
  Sender: FDA-Public Use
  Company Number: FR-ORACLE-2010S1000015

PATIENT
  Age: 68 Year
  Sex: Female

DRUGS (5)
  1. CUBICIN [Suspect]
     Indication: ARTHRITIS INFECTIVE
     Dates: end: 20100105
  2. CUBICIN [Suspect]
     Indication: OFF LABEL USE
     Dates: end: 20100105
  3. BETA-LACTAM ANTIBACTERIALS, PENICILLINS [Concomitant]
     Indication: PRODUCT USED FOR UNKNOWN INDICATION
  4. RIFAMPICIN [Suspect]
     Indication: ARTHRITIS INFECTIVE
  5. MEROPENEM [Concomitant]

REACTIONS (3)
  - EOSINOPHILIC PNEUMONIA [None]
  - RESPIRATORY DISTRESS [None]
  - ACUTE RESPIRATORY FAILURE [None]
